FAERS Safety Report 5828174-6 (Version None)
Quarter: 2008Q3

REPORT INFORMATION
  Report Type: 
  Country: None (occurrence: None)
  Receive Date: 20080729
  Receipt Date: 20080722
  Transmission Date: 20090109
  Serious: Yes (Death)
  Sender: FDA-Public Use
  Company Number: 1000000181

PATIENT
  Age: 15 Year
  Sex: Male

DRUGS (7)
  1. CELEXA [Suspect]
     Dates: end: 20080126
  2. OPANA ER [Suspect]
     Dosage: (20 MG, 45 ONCE), ORAL
     Route: 048
     Dates: start: 20080125, end: 20080126
  3. ALCOHOL [Suspect]
     Dates: end: 20080126
  4. RITALIN [Concomitant]
  5. NICOTINE [Concomitant]
  6. CANNABINOIDS [Concomitant]
  7. CAFFEINE [Concomitant]

REACTIONS (8)
  - ACCIDENTAL DEATH [None]
  - ALCOHOL POISONING [None]
  - DRUG SCREEN POSITIVE [None]
  - DRUG TOXICITY [None]
  - EPISTAXIS [None]
  - INTENTIONAL DRUG MISUSE [None]
  - MULTIPLE DRUG OVERDOSE [None]
  - UNRESPONSIVE TO STIMULI [None]
